FAERS Safety Report 23950192 (Version 1)
Quarter: 2024Q2

REPORT INFORMATION
  Report Type: Other
  Country: DE (occurrence: DE)
  Receive Date: 20240607
  Receipt Date: 20240607
  Transmission Date: 20240716
  Serious: Yes (Life-Threatening, Hospitalization, Disabling)
  Sender: FDA-Public Use
  Company Number: DE-B.Braun Medical Inc.-2157883

PATIENT
  Age: 61 Year

DRUGS (3)
  1. HEPARIN SODIUM IN DEXTROSE [Suspect]
     Active Substance: HEPARIN SODIUM
     Indication: Prophylaxis
     Route: 042
  2. PHENPROCOUMON [Suspect]
     Active Substance: PHENPROCOUMON
  3. GLYBURIDE [Concomitant]
     Active Substance: GLYBURIDE

REACTIONS (1)
  - Drug ineffective [Unknown]
